FAERS Safety Report 12839365 (Version 1)
Quarter: 2016Q4

REPORT INFORMATION
  Report Type: Spontaneous
  Country: US (occurrence: US)
  Receive Date: 20161010
  Receipt Date: 20161010
  Transmission Date: 20170207
  Serious: Yes (Hospitalization)
  Sender: FDA-Public Use
  Company Number: None

PATIENT
  Age: 31 Year
  Sex: Female
  Weight: 62.1 kg

DRUGS (2)
  1. LORAZEPAM. [Suspect]
     Active Substance: LORAZEPAM
     Indication: ANXIETY
     Dosage: EVERY 6 HOURS
     Route: 048
     Dates: start: 20160103
  2. LEVOXYL [Concomitant]
     Active Substance: LEVOTHYROXINE SODIUM

REACTIONS (7)
  - Muscle spasms [None]
  - Bruxism [None]
  - Diarrhoea [None]
  - Palpitations [None]
  - Ventricular tachycardia [None]
  - Dizziness [None]
  - Heart rate irregular [None]

NARRATIVE: CASE EVENT DATE: 20160618
